FAERS Safety Report 18193852 (Version 1)
Quarter: 2020Q3

REPORT INFORMATION
  Report Type: Spontaneous
  Country: FR (occurrence: FR)
  Receive Date: 20200825
  Receipt Date: 20200825
  Transmission Date: 20201103
  Serious: Yes (Life-Threatening, Hospitalization)
  Sender: FDA-Public Use
  Company Number: FR-MYLANLABS-2020M1074006

PATIENT
  Age: 33 Year
  Sex: Male
  Weight: 78 kg

DRUGS (2)
  1. CLOZAPIN MYLAN [Suspect]
     Active Substance: CLOZAPINE
     Indication: SCHIZOPHRENIA
     Dosage: 800 MG DAILY
  2. CLOZAPIN MYLAN [Suspect]
     Active Substance: CLOZAPINE
     Dosage: 950 MG DAILY
     Dates: start: 20200820

REACTIONS (3)
  - Product prescribing issue [Not Recovered/Not Resolved]
  - Hospitalisation [Unknown]
  - Prescribed overdose [Not Recovered/Not Resolved]

NARRATIVE: CASE EVENT DATE: 2020
